FAERS Safety Report 23248360 (Version 2)
Quarter: 2023Q4

REPORT INFORMATION
  Report Type: Spontaneous
  Country: US (occurrence: US)
  Receive Date: 20231201
  Receipt Date: 20231207
  Transmission Date: 20240109
  Serious: Yes (Death, Hospitalization, Other)
  Sender: FDA-Public Use
  Company Number: US-AMGEN-USASP2023213193

PATIENT
  Age: 53 Year
  Sex: Male

DRUGS (8)
  1. OTEZLA [Suspect]
     Active Substance: APREMILAST
     Indication: Psoriasis
     Dosage: 30 MILLIGRAM, BID
     Route: 048
     Dates: start: 20220426, end: 202311
  2. AMBIEN [Concomitant]
     Active Substance: ZOLPIDEM TARTRATE
     Dosage: 5 MILLIGRAM
  3. BUPROPION [Concomitant]
     Active Substance: BUPROPION
     Dosage: 100 MILLIGRAM
  4. BUPROPION HYDROCHLORIDE XL [Concomitant]
     Active Substance: BUPROPION HYDROCHLORIDE
     Dosage: 150 MILLIGRAM
  5. CHLORDIAZEPOX [Concomitant]
     Dosage: 25 MILLIGRAM
  6. LISINOPRIL [Concomitant]
     Active Substance: LISINOPRIL
     Dosage: 2.5 MILLIGRAM
  7. XANAX [Concomitant]
     Active Substance: ALPRAZOLAM
     Dosage: 0.25 MILLIGRAM
  8. ZYPREXA [Concomitant]
     Active Substance: OLANZAPINE
     Dosage: 2.5 MILLIGRAM

REACTIONS (3)
  - Death [Fatal]
  - Syncope [Unknown]
  - Fatigue [Unknown]

NARRATIVE: CASE EVENT DATE: 20231107
